FAERS Safety Report 22630354 (Version 1)
Quarter: 2023Q2

REPORT INFORMATION
  Report Type: Spontaneous
  Country: DK (occurrence: DK)
  Receive Date: 20230622
  Receipt Date: 20230622
  Transmission Date: 20230722
  Serious: Yes (Hospitalization)
  Sender: FDA-Public Use
  Company Number: None

PATIENT
  Age: 71 Year
  Sex: Female

DRUGS (4)
  1. TRAMADOL [Suspect]
     Active Substance: TRAMADOL
     Indication: Humerus fracture
     Dosage: START DOSAGE: 100MG TWICE A DAY, REDUCED ON 20FEB2023,
     Route: 065
     Dates: start: 202302
  2. TRAMADOL [Suspect]
     Active Substance: TRAMADOL
     Route: 065
     Dates: start: 202305
  3. MORPHINE SULFATE [Suspect]
     Active Substance: MORPHINE SULFATE
     Indication: Humerus fracture
     Dosage: START DOSAGE: 20 MG TWICE A DAY, REDUCED ON 20FEB2023
     Route: 065
     Dates: start: 202302
  4. MORPHINE SULFATE [Suspect]
     Active Substance: MORPHINE SULFATE
     Route: 065
     Dates: start: 202305

REACTIONS (12)
  - Malaise [Unknown]
  - Oedema peripheral [Unknown]
  - Somnolence [Unknown]
  - Hyperhidrosis [Unknown]
  - Chills [Unknown]
  - Asthenia [Unknown]
  - Dizziness [Unknown]
  - Abdominal pain [Unknown]
  - Toxicity to various agents [Unknown]
  - Palpitations [Unknown]
  - Dyspnoea [Unknown]
  - Overdose [Unknown]

NARRATIVE: CASE EVENT DATE: 20230301
